FAERS Safety Report 6400250-9 (Version None)
Quarter: 2009Q4

REPORT INFORMATION
  Report Type: 
  Country: None (occurrence: None)
  Receive Date: 20091014
  Receipt Date: 20091005
  Transmission Date: 20100525
  Serious: Yes (Hospitalization)
  Sender: FDA-Public Use
  Company Number: BR-ABBOTT-09P-020-0562995-00

PATIENT
  Sex: Female
  Weight: 108 kg

DRUGS (12)
  1. HUMIRA [Suspect]
     Indication: PSORIASIS
     Route: 058
     Dates: start: 20090126, end: 20090301
  2. HUMIRA [Suspect]
     Indication: RHEUMATOID ARTHRITIS
  3. METHOTREXATE [Concomitant]
     Indication: RHEUMATOID ARTHRITIS
     Route: 050
     Dates: start: 20060101
  4. UNKNOWN CORTICOID [Concomitant]
     Indication: DRUG USE FOR UNKNOWN INDICATION
  5. OMEPRAZOLE [Concomitant]
     Indication: GASTRIC DISORDER
     Route: 048
     Dates: start: 20070101
  6. SULFASALAZINE [Concomitant]
     Indication: RHEUMATOID ARTHRITIS
     Route: 048
     Dates: start: 20090401
  7. FOLIC ACID [Concomitant]
     Indication: RHEUMATOID ARTHRITIS
     Route: 048
     Dates: start: 20070101
  8. DICLOFENAC SODIUM [Concomitant]
     Indication: PAIN
  9. CALCIUM +VIT D [Concomitant]
     Indication: ARTHRITIS
  10. ENBREL [Concomitant]
     Indication: PSORIASIS
     Dates: start: 20090608
  11. PREDNISONE [Concomitant]
     Indication: RHEUMATOID ARTHRITIS
     Route: 048
     Dates: start: 20070101
  12. POTASSIUM CARBONATE [Concomitant]
     Indication: RHEUMATOID ARTHRITIS
     Route: 048
     Dates: start: 20090401

REACTIONS (9)
  - DIABETES MELLITUS [None]
  - DYSPNOEA [None]
  - GENERALISED OEDEMA [None]
  - HYPERTENSION [None]
  - LUNG NEOPLASM [None]
  - PALPITATIONS [None]
  - PSORIASIS [None]
  - SINUSITIS [None]
  - TUBERCULIN TEST POSITIVE [None]
